FAERS Safety Report 23118640 (Version 3)
Quarter: 2023Q4

REPORT INFORMATION
  Report Type: Report from Study
  Country: GB (occurrence: GB)
  Receive Date: 20231028
  Receipt Date: 20231228
  Transmission Date: 20240110
  Serious: Yes (Other)
  Sender: FDA-Public Use
  Company Number: GB-ABBVIE-4739891

PATIENT
  Age: 25 Year
  Sex: Female

DRUGS (3)
  1. SKYRIZI [Suspect]
     Active Substance: RISANKIZUMAB-RZAA
     Indication: Psoriasis
     Dosage: FORM STRENGTH WAS 150 MILLIGRAMS
     Route: 058
     Dates: end: 20230207
  2. SKYRIZI [Suspect]
     Active Substance: RISANKIZUMAB-RZAA
     Dosage: FORM STRENGTH: 150 MILLIGRAM
     Route: 058
     Dates: start: 20231123, end: 20231123
  3. SKYRIZI [Suspect]
     Active Substance: RISANKIZUMAB-RZAA
     Route: 058

REACTIONS (6)
  - Premature baby [Unknown]
  - Blood pressure increased [Unknown]
  - Psoriasis [Unknown]
  - Maternal exposure during pregnancy [Unknown]
  - COVID-19 [Recovered/Resolved]
  - Live birth [Unknown]

NARRATIVE: CASE EVENT DATE: 20230101
